FAERS Safety Report 16993930 (Version 1)
Quarter: 2019Q4

REPORT INFORMATION
  Report Type: Spontaneous
  Country: US (occurrence: US)
  Receive Date: 20190923
  Receipt Date: 20190923
  Transmission Date: 20200122
  Serious: Yes (Hospitalization)
  Sender: FDA-Public Use
  Company Number: None

PATIENT
  Age: 73 Year
  Sex: Male
  Weight: 126.69 kg

DRUGS (1)
  1. BENZTROPINE. [Suspect]
     Active Substance: BENZTROPINE
     Indication: PROPHYLAXIS
     Route: 048
     Dates: start: 20190327, end: 20190408

REACTIONS (2)
  - Urinary retention [None]
  - Anuria [None]

NARRATIVE: CASE EVENT DATE: 20190408
